FAERS Safety Report 13420663 (Version 1)
Quarter: 2017Q2

REPORT INFORMATION
  Report Type: Report from Study
  Country: None (occurrence: GT)
  Receive Date: 20170409
  Receipt Date: 20170409
  Transmission Date: 20170830
  Serious: Yes (Death, Other)
  Sender: FDA-Public Use
  Company Number: GT-ABBVIE-17K-069-1937638-00

PATIENT
  Age: 52 Year
  Sex: Female

DRUGS (1)
  1. HUMIRA [Suspect]
     Active Substance: ADALIMUMAB
     Indication: RHEUMATOID ARTHRITIS
     Route: 058
     Dates: start: 20140304, end: 20170322

REACTIONS (4)
  - Cardiac arrest [Fatal]
  - Malaise [Not Recovered/Not Resolved]
  - Depression [Not Recovered/Not Resolved]
  - Hypophagia [Not Recovered/Not Resolved]

NARRATIVE: CASE EVENT DATE: 20170322
